FAERS Safety Report 19914024 (Version 1)
Quarter: 2021Q4

REPORT INFORMATION
  Report Type: Report from Study
  Country: None (occurrence: UY)
  Receive Date: 20211005
  Receipt Date: 20211005
  Transmission Date: 20220303
  Serious: Yes (Other)
  Sender: FDA-Public Use
  Company Number: UY-ABBVIE-21K-168-4105379-00

PATIENT
  Age: 59 Year
  Sex: Male

DRUGS (2)
  1. HUMIRA [Suspect]
     Active Substance: ADALIMUMAB
     Indication: Psoriatic arthropathy
     Route: 058
     Dates: start: 20150814
  2. HUMIRA [Suspect]
     Active Substance: ADALIMUMAB
     Route: 058
     Dates: start: 20210924

REACTIONS (13)
  - Inguinal hernia [Recovering/Resolving]
  - Post procedural inflammation [Recovering/Resolving]
  - Mass [Recovered/Resolved]
  - Bladder discomfort [Recovered/Resolved]
  - Post procedural complication [Recovered/Resolved]
  - Post procedural complication [Recovering/Resolving]
  - Post procedural inflammation [Recovered/Resolved]
  - Seroma [Recovering/Resolving]
  - Seroma [Recovered/Resolved]
  - Fluid retention [Recovering/Resolving]
  - Fluid retention [Recovered/Resolved]
  - Abdominal discomfort [Recovered/Resolved]
  - Pain [Recovered/Resolved]

NARRATIVE: CASE EVENT DATE: 20210909
